FAERS Safety Report 8271606 (Version 3)
Quarter: 2012Q4

REPORT INFORMATION
  Report Type: 
  Country: JP (occurrence: JP)
  Receive Date: 20111201
  Receipt Date: 20120914
  Transmission Date: 20130627
  Serious: Yes (Life-Threatening, Other)
  Sender: FDA-Public Use
  Company Number: JP-ASTRAZENECA-2011SE63259

PATIENT
  Age: 16915 Day
  Sex: Male
  Weight: 74.2 kg

DRUGS (9)
  1. SEROQUEL [Suspect]
     Indication: DEPRESSION
     Route: 048
     Dates: start: 20101129, end: 20110113
  2. SEROQUEL [Suspect]
     Indication: DEPRESSION
     Route: 048
     Dates: end: 20110202
  3. PAXIL [Suspect]
     Indication: DEPRESSION
     Route: 048
     Dates: start: 20101126
  4. SALOBEL [Suspect]
     Indication: HYPERLIPIDAEMIA
     Route: 048
     Dates: start: 20070611
  5. LIVALO [Suspect]
     Indication: HYPERLIPIDAEMIA
     Route: 048
     Dates: start: 20070611
  6. MYSLEE [Suspect]
     Indication: INSOMNIA
     Route: 048
     Dates: start: 20101129, end: 20110623
  7. ROHYPNOL [Concomitant]
     Route: 048
  8. DESYREL [Concomitant]
     Route: 048
  9. REFLEX [Concomitant]
     Route: 048

REACTIONS (3)
  - Diabetic ketoacidosis [Recovering/Resolving]
  - Hyperglycaemia [Recovering/Resolving]
  - Intentional drug misuse [Unknown]
